FAERS Safety Report 13873418 (Version 1)
Quarter: 2017Q3

REPORT INFORMATION
  Report Type: Spontaneous
  Country: CA (occurrence: CA)
  Receive Date: 20170816
  Receipt Date: 20170816
  Transmission Date: 20171127
  Serious: Yes (Hospitalization, Other)
  Sender: FDA-Public Use
  Company Number: CA-B.I. PHARMACEUTICALS,INC./RIDGEFIELD-2017-BI-044580

PATIENT
  Age: 65 Year
  Sex: Male
  Weight: 91 kg

DRUGS (1)
  1. PRADAXA [Suspect]
     Active Substance: DABIGATRAN ETEXILATE MESYLATE
     Indication: ATRIAL FIBRILLATION
     Route: 048

REACTIONS (8)
  - Infection [Recovering/Resolving]
  - Antibiotic therapy [Recovering/Resolving]
  - Cholelithiasis [Recovering/Resolving]
  - Abdominal discomfort [Recovering/Resolving]
  - Pancreatitis [Recovering/Resolving]
  - Gallbladder operation [Recovering/Resolving]
  - Biliary drainage [Recovering/Resolving]
  - Endoscopy [Recovering/Resolving]
